FAERS Safety Report 21370631 (Version 1)
Quarter: 2022Q3

REPORT INFORMATION
  Report Type: Spontaneous
  Country: DE (occurrence: DE)
  Receive Date: 20220923
  Receipt Date: 20220923
  Transmission Date: 20221026
  Serious: Yes (Hospitalization, Other)
  Sender: FDA-Public Use
  Company Number: DE-UCBSA-2022056221

PATIENT
  Age: 40 Year

DRUGS (13)
  1. BRIVARACETAM [Suspect]
     Active Substance: BRIVARACETAM
     Indication: Product used for unknown indication
     Dosage: 200 MG A DAY
     Route: 042
     Dates: start: 201905
  2. BRIVARACETAM [Suspect]
     Active Substance: BRIVARACETAM
     Dosage: DOSE INCREASED
     Dates: start: 202002
  3. BRIVARACETAM [Suspect]
     Active Substance: BRIVARACETAM
     Dosage: 50 MG MORNING AND 100 MG AT NIGHT
     Route: 042
  4. LACOSAMIDE [Suspect]
     Active Substance: LACOSAMIDE
     Indication: Product used for unknown indication
     Dosage: UNK
     Dates: start: 202002
  5. LACOSAMIDE [Suspect]
     Active Substance: LACOSAMIDE
     Dosage: DOSE INCREASED
  6. PHENOBARBITAL [Suspect]
     Active Substance: PHENOBARBITAL
     Indication: Product used for unknown indication
     Dosage: UNK
     Dates: start: 202010
  7. PERAMPANEL [Suspect]
     Active Substance: PERAMPANEL
     Indication: Product used for unknown indication
     Dosage: 4 MILLIGRAM, ONCE DAILY (QD)
  8. PERAMPANEL [Suspect]
     Active Substance: PERAMPANEL
     Dosage: 6 MG
     Dates: start: 202012
  9. PERAMPANEL [Suspect]
     Active Substance: PERAMPANEL
     Dosage: 8 MG
     Dates: start: 20210201, end: 202105
  10. VALPROATE [Suspect]
     Active Substance: VALPROIC ACID
     Indication: Product used for unknown indication
     Dosage: 1200 MILLIGRAM, ONCE DAILY (QD)
  11. VALPROATE [Suspect]
     Active Substance: VALPROIC ACID
     Dosage: 750 MILLIGRAM, 2X/DAY (BID)
  12. ETHOSUXIMIDE [Suspect]
     Active Substance: ETHOSUXIMIDE
     Indication: Product used for unknown indication
  13. PHENOBARBITAL SODIUM [Suspect]
     Active Substance: PHENOBARBITAL SODIUM
     Indication: Product used for unknown indication
     Dosage: 50-0-75 MG

REACTIONS (7)
  - Seizure [Recovered/Resolved]
  - Myoclonus [Unknown]
  - Loss of consciousness [Unknown]
  - Generalised tonic-clonic seizure [Unknown]
  - Pneumonia [Unknown]
  - Fatigue [Unknown]
  - Product use issue [Unknown]
